FAERS Safety Report 11756563 (Version 1)
Quarter: 2015Q4

REPORT INFORMATION
  Report Type: Report from Study
  Country: GB (occurrence: GB)
  Receive Date: 20151119
  Receipt Date: 20151119
  Transmission Date: 20160304
  Serious: Yes (Death, Other)
  Sender: FDA-Public Use
  Company Number: GB-ROCHE-1663411

PATIENT

DRUGS (3)
  1. OXALIPLATIN. [Suspect]
     Active Substance: OXALIPLATIN
     Indication: GASTROOESOPHAGEAL CANCER
     Dosage: ON DAY 1 OF CYCLE
     Route: 065
  2. CAPECITABINE. [Suspect]
     Active Substance: CAPECITABINE
     Indication: GASTROOESOPHAGEAL CANCER
     Dosage: ON DAY 1 TO 14 OF CYCLE
     Route: 048
  3. LAPATINIB [Suspect]
     Active Substance: LAPATINIB
     Indication: GASTROOESOPHAGEAL CANCER
     Route: 048

REACTIONS (2)
  - Anastomotic leak [Unknown]
  - Lower respiratory tract infection [Fatal]
